FAERS Safety Report 6727718-X (Version None)
Quarter: 2010Q2

REPORT INFORMATION
  Report Type: 
  Country: None (occurrence: None)
  Receive Date: 20100512
  Receipt Date: 20100504
  Transmission Date: 20101027
  Serious: Yes (Other)
  Sender: FDA-Public Use
  Company Number: DSM-2010-00624

PATIENT
  Age: 71 Year
  Sex: Male
  Weight: 108 kg

DRUGS (2)
  1. AMLODIPINE BESYLATE AND OLMESARTAN MEDOXOMIL [Suspect]
     Indication: HYPERTENSION
     Dosage: 20/5 MG (1 IN 1 D), ORAL
     Route: 048
     Dates: start: 20091013, end: 20091203
  2. DIAMICRON (GLICLAZIDE) [Concomitant]

REACTIONS (2)
  - OEDEMA PERIPHERAL [None]
  - TACHYCARDIA [None]
